FAERS Safety Report 4441531-8 (Version None)
Quarter: 2004Q3

REPORT INFORMATION
  Report Type: 
  Country: None (occurrence: None)
  Receive Date: 20040728
  Receipt Date: 20040511
  Transmission Date: 20050211
  Serious: No
  Sender: FDA-Public Use
  Company Number: USA040567230

PATIENT
  Age: 12 Year
  Weight: 31 kg

DRUGS (1)
  1. STRATTERA [Suspect]
     Dosage: 25 MG

REACTIONS (1)
  - PSYCHOMOTOR HYPERACTIVITY [None]
